FAERS Safety Report 6736137-1 (Version None)
Quarter: 2010Q2

REPORT INFORMATION
  Report Type: 
  Country: None (occurrence: None)
  Receive Date: 20100521
  Receipt Date: 20100513
  Transmission Date: 20101027
  Serious: Yes (Other)
  Sender: FDA-Public Use
  Company Number: US-ROCHE-701012

PATIENT
  Sex: Male
  Weight: 76.2 kg

DRUGS (16)
  1. PEGASYS [Suspect]
     Indication: HEPATITIS C
     Route: 058
     Dates: start: 20100326, end: 20100402
  2. PEGASYS [Suspect]
     Dosage: INCREASED
     Route: 058
     Dates: start: 20100409, end: 20100430
  3. INSULIN [Concomitant]
  4. ZOLOFT [Concomitant]
     Indication: DEPRESSION
     Route: 048
  5. PROGRAF [Concomitant]
     Indication: LIVER TRANSPLANT
     Route: 048
  6. NEURONTIN [Concomitant]
     Route: 048
  7. RENAGEL [Concomitant]
  8. AMLODIPINE [Concomitant]
  9. HYDRALAZINE HCL [Concomitant]
  10. PHOSLO [Concomitant]
     Indication: RENAL FAILURE
     Dosage: DOSE:667
     Route: 048
  11. COREG [Concomitant]
     Indication: HYPERTENSION
     Route: 048
  12. IRON [Concomitant]
  13. BUMEX [Concomitant]
  14. ZEMPLAR [Concomitant]
  15. NORVASC [Concomitant]
     Indication: HYPERTENSION
     Route: 048
  16. ASPIRIN [Concomitant]
     Dosage: DRUG REPORTED AS BABY ASPIRIN

REACTIONS (12)
  - BLOOD GLUCOSE DECREASED [None]
  - CHILLS [None]
  - DECREASED APPETITE [None]
  - HEADACHE [None]
  - HEPATIC FIBROSIS [None]
  - INFLUENZA LIKE ILLNESS [None]
  - PAIN [None]
  - PRODUCT QUALITY ISSUE [None]
  - PYREXIA [None]
  - RETINOPATHY [None]
  - VISION BLURRED [None]
  - VOMITING [None]
